FAERS Safety Report 7322882-6 (Version None)
Quarter: 2011Q1

REPORT INFORMATION
  Report Type: 
  Country: None (occurrence: None)
  Receive Date: 20110215
  Receipt Date: 20101208
  Transmission Date: 20110831
  Serious: Yes (Other)
  Sender: FDA-Public Use
  Company Number: 2010P1003164

PATIENT
  Age: 33 Year
  Sex: Male
  Weight: 77.1115 kg

DRUGS (3)
  1. NALTREXONE [Concomitant]
  2. CLORAZEPATE DIPOTASSIUM [Suspect]
     Indication: ALCOHOL WITHDRAWAL SYNDROME
     Dosage: 7.5 MG; PRN; PO
     Route: 048
     Dates: start: 20101001
  3. CLORAZEPATE DIPOTASSIUM [Suspect]
     Indication: ANXIETY
     Dosage: 7.5 MG; PRN; PO
     Route: 048
     Dates: start: 20101001

REACTIONS (1)
  - AMNESIA [None]
